FAERS Safety Report 22247580 (Version 2)
Quarter: 2023Q2

REPORT INFORMATION
  Report Type: Spontaneous
  Country: US (occurrence: None)
  Receive Date: 20230425
  Receipt Date: 20230608
  Transmission Date: 20230721
  Serious: No
  Sender: FDA-Public Use
  Company Number: 2023A093370

PATIENT

DRUGS (1)
  1. BREZTRI [Suspect]
     Active Substance: BUDESONIDE\FORMOTEROL\GLYCOPYRROLATE
     Indication: Asthma
     Dosage: UNKNOWN
     Route: 055

REACTIONS (5)
  - Dyspnoea [Unknown]
  - Asthma [Unknown]
  - Lung disorder [Unknown]
  - Device malfunction [Unknown]
  - Wrong technique in device usage process [Unknown]
